FAERS Safety Report 6332912-6 (Version None)
Quarter: 2009Q3

REPORT INFORMATION
  Report Type: 
  Country: None (occurrence: None)
  Receive Date: 20090828
  Receipt Date: 20090821
  Transmission Date: 20100115
  Serious: Yes (Hospitalization)
  Sender: FDA-Public Use
  Company Number: US-JNJFOC-20090807884

PATIENT
  Sex: Female
  Weight: 100.7 kg

DRUGS (18)
  1. DURAGESIC-100 [Suspect]
     Route: 062
  2. DURAGESIC-100 [Suspect]
     Indication: PAIN
     Route: 062
  3. FENTANYL TRANSDERMAL SYSTEM [Suspect]
     Indication: PAIN
     Route: 062
  4. PREVACID [Concomitant]
     Indication: GASTROOESOPHAGEAL REFLUX DISEASE
     Route: 048
  5. PROAIR HFA [Concomitant]
     Indication: ASTHMA
     Dosage: AS NEEDED
     Route: 048
  6. VERAPAMIL [Concomitant]
     Indication: HEART RATE INCREASED
     Route: 048
  7. ARTHROTEC [Concomitant]
     Indication: ARTHRITIS
     Route: 048
  8. PRINZIDE [Concomitant]
     Indication: HYPERTENSION
     Dosage: 20/25MG 1 TABLET 1 IN 24 HOURS
     Route: 048
  9. GABAPENTIN [Concomitant]
     Indication: BACK PAIN
     Route: 048
  10. FUROSEMIDE [Concomitant]
     Indication: SWELLING
     Route: 048
  11. COREG [Concomitant]
     Indication: CARDIAC MURMUR
     Route: 048
  12. LANTUS [Concomitant]
     Dosage: 95 UNITS IN PM
     Route: 058
  13. LANTUS [Concomitant]
     Indication: DIABETES MELLITUS
     Dosage: 45 UNITS AT BREAKFAST AND LUNCH
     Route: 058
  14. NOVOLOG [Concomitant]
     Indication: DIABETES MELLITUS
     Dosage: 40 UNITS AT BREAKFAST, LUNCH AND DINNER
     Route: 058
  15. ASACOL [Concomitant]
     Indication: COLITIS ULCERATIVE
     Route: 048
  16. AMITRIPTYLINE [Concomitant]
     Indication: INSOMNIA
     Dosage: 1 AT NIGHT
     Route: 048
  17. LOMOTIL [Concomitant]
     Indication: DIARRHOEA
     Route: 048
  18. ADVAIR DISKUS 500/50 [Concomitant]
     Indication: ASTHMA
     Dosage: 500/50 MCG, 2 PUFFS IN 24 HOURS
     Route: 048

REACTIONS (12)
  - BACK DISORDER [None]
  - BLOOD POTASSIUM DECREASED [None]
  - BLOOD PRESSURE DECREASED [None]
  - BREAKTHROUGH PAIN [None]
  - DEVICE ADHESION ISSUE [None]
  - DRUG ADMINISTERED AT INAPPROPRIATE SITE [None]
  - HEADACHE [None]
  - INSOMNIA [None]
  - OEDEMA PERIPHERAL [None]
  - SPINAL FUSION SURGERY [None]
  - SPINAL LAMINECTOMY [None]
  - WRONG TECHNIQUE IN DRUG USAGE PROCESS [None]
